FAERS Safety Report 5991266-5 (Version None)
Quarter: 2008Q4

REPORT INFORMATION
  Report Type: 
  Country: None (occurrence: None)
  Receive Date: 20081211
  Receipt Date: 20081202
  Transmission Date: 20090506
  Serious: Yes (Hospitalization)
  Sender: FDA-Public Use
  Company Number: US-JNJFOC-20081004831

PATIENT
  Sex: Female
  Weight: 89.81 kg

DRUGS (10)
  1. TOPAMAX [Suspect]
     Indication: DEPRESSION
     Route: 048
  2. DURAGESIC-100 [Concomitant]
     Route: 062
  3. DURAGESIC-100 [Concomitant]
     Route: 062
  4. DURAGESIC-100 [Concomitant]
     Indication: PAIN
     Route: 062
  5. PREVACID [Concomitant]
     Indication: GASTROINTESTINAL DISORDER
  6. WELLBUTRIN [Concomitant]
     Indication: DEPRESSION
  7. EFFEXOR [Concomitant]
     Indication: DEPRESSION
  8. PROVIGIL [Concomitant]
     Indication: DRUG USE FOR UNKNOWN INDICATION
  9. OXYCODONE HCL [Concomitant]
     Indication: PAIN
  10. FUROSEMIDE [Concomitant]
     Indication: OEDEMA PERIPHERAL

REACTIONS (4)
  - ARTHRITIS [None]
  - CHOLELITHIASIS [None]
  - OFF LABEL USE [None]
  - PNEUMONIA [None]
